FAERS Safety Report 21231820 (Version 2)
Quarter: 2024Q1

REPORT INFORMATION
  Report Type: Report from Study
  Country: IT (occurrence: IT)
  Receive Date: 20220819
  Receipt Date: 20240301
  Transmission Date: 20240410
  Serious: Yes (Hospitalization)
  Sender: FDA-Public Use
  Company Number: None

PATIENT
  Age: 24 Year
  Sex: Female

DRUGS (5)
  1. DULOXETINE [Suspect]
     Active Substance: DULOXETINE
     Indication: Product used for unknown indication
     Dosage: 2 TABLETS AT 9AM
     Route: 065
     Dates: start: 20220505
  2. LITHIUM SULFATE [Suspect]
     Active Substance: LITHIUM SULFATE
     Indication: Product used for unknown indication
     Dosage: 2 TABLETS 8PM
     Route: 048
     Dates: start: 20220505
  3. FLURAZEPAM HYDROCHLORIDE [Suspect]
     Active Substance: FLURAZEPAM HYDROCHLORIDE
     Indication: Product used for unknown indication
     Dosage: 3 TABLETS AT 8PM
     Route: 048
     Dates: start: 20220505
  4. VALIUM [Suspect]
     Active Substance: DIAZEPAM
     Indication: Product used for unknown indication
     Dosage: 60 DAYS AT 1PM + 30 DAYS AT 8PM
     Route: 048
  5. QUETIAPINE [Suspect]
     Active Substance: QUETIAPINE
     Indication: Product used for unknown indication
     Dosage: 3 TABLETS AT 8PM
     Route: 048
     Dates: start: 20220505

REACTIONS (6)
  - Nausea [Unknown]
  - Headache [Unknown]
  - Dyspnoea [Unknown]
  - Vertigo [Unknown]
  - Vision blurred [Unknown]
  - Drug abuse [Unknown]

NARRATIVE: CASE EVENT DATE: 20220505
